FAERS Safety Report 5763842-6 (Version None)
Quarter: 2008Q2

REPORT INFORMATION
  Report Type: 
  Country: None (occurrence: None)
  Receive Date: 20080606
  Receipt Date: 20080606
  Transmission Date: 20081010
  Serious: Yes (Other)
  Sender: FDA-Public Use
  Company Number: None

PATIENT
  Sex: Male
  Weight: 67.52 kg

DRUGS (1)
  1. RITUXAN [Suspect]

REACTIONS (3)
  - CHEST PAIN [None]
  - DYSPEPSIA [None]
  - OXYGEN SATURATION DECREASED [None]
